FAERS Safety Report 9828794 (Version 2)
Quarter: 2014Q1

REPORT INFORMATION
  Report Type: Spontaneous
  Country: BE (occurrence: BE)
  Receive Date: 20140118
  Receipt Date: 20140217
  Transmission Date: 20141002
  Serious: Yes (Other)
  Sender: FDA-Public Use
  Company Number: BE-ROCHE-1335498

PATIENT
  Sex: Female
  Weight: 51 kg

DRUGS (15)
  1. MIRCERA [Suspect]
     Indication: ANAEMIA
     Route: 058
     Dates: start: 20131118, end: 20140106
  2. BETASERC [Concomitant]
     Indication: VERTIGO
     Route: 048
  3. BROMAZEPAM [Concomitant]
     Indication: INSOMNIA
     Route: 048
  4. CORUNO [Concomitant]
     Indication: HYPERTENSION
     Route: 048
  5. COVERSYL [Concomitant]
     Indication: HYPERTENSION
     Route: 048
  6. D-CURE [Concomitant]
     Indication: OSTEOPOROSIS
     Route: 048
  7. FOLAVIT [Concomitant]
     Indication: PRODUCT USED FOR UNKNOWN INDICATION
     Route: 048
  8. FOSAMAX [Concomitant]
     Indication: OSTEOPOROSIS
     Route: 048
  9. LASIX [Concomitant]
     Indication: PRODUCT USED FOR UNKNOWN INDICATION
     Route: 048
  10. TENORMIN [Concomitant]
     Indication: HYPERTENSION
     Route: 048
  11. PANTOMED (BELGIUM) [Concomitant]
     Indication: GASTRITIS
     Route: 048
  12. MEDROL [Concomitant]
     Indication: RHEUMATOID ARTHRITIS
     Route: 048
  13. NEORAL [Concomitant]
     Indication: APLASTIC ANAEMIA
     Route: 048
  14. MONTELUKAST [Concomitant]
     Indication: ASTHMA
     Route: 048
  15. MIFLONIDE [Concomitant]
     Indication: ASTHMA
     Route: 055

REACTIONS (1)
  - Aplasia pure red cell [Unknown]
